FAERS Safety Report 9117974 (Version 1)
Quarter: 2013Q1

REPORT INFORMATION
  Report Type: Spontaneous
  Country: US (occurrence: US)
  Receive Date: 20130208
  Receipt Date: 20130208
  Transmission Date: 20140127
  Serious: No
  Sender: FDA-Public Use
  Company Number: US-PFIZER INC-2013053471

PATIENT
  Age: 35 Year
  Sex: Female
  Weight: 79.37 kg

DRUGS (2)
  1. CHANTIX [Suspect]
     Indication: SMOKING CESSATION THERAPY
     Dosage: 0.5 MG, 1X/DAY
     Dates: start: 2010, end: 2010
  2. CHANTIX [Suspect]
     Dosage: UNK
     Dates: start: 2010, end: 201101

REACTIONS (1)
  - Abnormal dreams [Recovered/Resolved]
